FAERS Safety Report 4771319-X (Version None)
Quarter: 2005Q3

REPORT INFORMATION
  Report Type: 
  Country: None (occurrence: None)
  Receive Date: 20050914
  Receipt Date: 20050829
  Transmission Date: 20060218
  Serious: Yes (Other)
  Sender: FDA-Public Use
  Company Number: USA0508106793

PATIENT
  Age: 81 Year
  Sex: Female

DRUGS (6)
  1. FORTEO [Suspect]
     Indication: OSTEOPOROSIS
     Dosage: 20 UG/1 DAY
  2. LISINOPIRL [Concomitant]
  3. OSCAL (CALCIUM CARBONATE) [Concomitant]
  4. COLACE (DOCUSATE SODIUM) [Concomitant]
  5. SYNTHROID [Concomitant]
  6. LACTULOSE [Concomitant]

REACTIONS (1)
  - CEREBROVASCULAR ACCIDENT [None]
